FAERS Safety Report 4906473-X (Version None)
Quarter: 2006Q1

REPORT INFORMATION
  Report Type: 
  Country: None (occurrence: None)
  Receive Date: 20060209
  Receipt Date: 20051001
  Transmission Date: 20060701
  Serious: Yes (Hospitalization, Disabling)
  Sender: FDA-Public Use
  Company Number: PR-MERCK-0510USA01826

PATIENT
  Age: 54 Year
  Sex: Male
  Weight: 75 kg

DRUGS (2)
  1. VIOXX [Suspect]
     Indication: SHOULDER PAIN
     Route: 048
     Dates: start: 20030101, end: 20040101
  2. VIOXX [Suspect]
     Route: 048
     Dates: start: 20030101, end: 20040101

REACTIONS (13)
  - ARTERIOSCLEROSIS [None]
  - BALANCE DISORDER [None]
  - CEREBROVASCULAR ACCIDENT [None]
  - CHEST PAIN [None]
  - DEPRESSION [None]
  - DIABETES MELLITUS NON-INSULIN-DEPENDENT [None]
  - ESSENTIAL HYPERTENSION [None]
  - HYPOAESTHESIA [None]
  - ISCHAEMIC CEREBRAL INFARCTION [None]
  - MITRAL VALVE PROLAPSE [None]
  - NERVOUS SYSTEM DISORDER [None]
  - PYREXIA [None]
  - SINUSITIS [None]
